FAERS Safety Report 21458302 (Version 6)
Quarter: 2022Q4

REPORT INFORMATION
  Report Type: Spontaneous
  Country: US (occurrence: US)
  Receive Date: 20221014
  Receipt Date: 20221202
  Transmission Date: 20230113
  Serious: No
  Sender: FDA-Public Use
  Company Number: US-PFIZER INC-PV202200081740

PATIENT
  Age: 59 Year
  Sex: Female

DRUGS (1)
  1. IBRANCE [Suspect]
     Active Substance: PALBOCICLIB
     Dosage: 125 MG
     Dates: start: 20221010

REACTIONS (13)
  - Headache [Recovered/Resolved]
  - Fatigue [Not Recovered/Not Resolved]
  - Decreased appetite [Not Recovered/Not Resolved]
  - Food craving [Unknown]
  - Alopecia [Not Recovered/Not Resolved]
  - Tongue discolouration [Unknown]
  - Pain [Unknown]
  - Depressed mood [Not Recovered/Not Resolved]
  - Mood altered [Recovering/Resolving]
  - Pain in extremity [Unknown]
  - Scar pain [Unknown]
  - Musculoskeletal disorder [Not Recovered/Not Resolved]
  - Somnolence [Unknown]

NARRATIVE: CASE EVENT DATE: 20220101
